FAERS Safety Report 6943581-6 (Version None)
Quarter: 2010Q3

REPORT INFORMATION
  Report Type: 
  Country: None (occurrence: None)
  Receive Date: 20100826
  Receipt Date: 20100816
  Transmission Date: 20110219
  Serious: Yes (Hospitalization)
  Sender: FDA-Public Use
  Company Number: US-ABBOTT-10P-163-0664340-00

PATIENT
  Sex: Male
  Weight: 74.002 kg

DRUGS (2)
  1. HUMIRA [Suspect]
     Indication: CROHN'S DISEASE
  2. VITAMIN B-12 [Concomitant]
     Indication: PRODUCT USED FOR UNKNOWN INDICATION
     Dosage: 1 INJECTION/MONTH

REACTIONS (5)
  - ABDOMINAL PAIN [None]
  - COLONIC STENOSIS [None]
  - HYPOPHAGIA [None]
  - VOMITING [None]
  - WEIGHT DECREASED [None]
